FAERS Safety Report 10034435 (Version 1)
Quarter: 2014Q1

REPORT INFORMATION
  Report Type: Spontaneous
  Country: US (occurrence: None)
  Receive Date: 20140324
  Receipt Date: 20140324
  Transmission Date: 20141002
  Serious: No
  Sender: FDA-Public Use
  Company Number: None

PATIENT
  Age: 38 Year
  Sex: Female

DRUGS (1)
  1. ZANAMIVIR [Suspect]
     Indication: H1N1 INFLUENZA
     Dosage: IV.

REACTIONS (1)
  - No adverse event [None]
